FAERS Safety Report 4363962-7 (Version None)
Quarter: 2004Q2

REPORT INFORMATION
  Report Type: 
  Country: None (occurrence: None)
  Receive Date: 20040525
  Receipt Date: 20040514
  Transmission Date: 20050107
  Serious: Yes (Life-Threatening, Hospitalization)
  Sender: FDA-Public Use
  Company Number: JP-BRISTOL-MYERS SQUIBB COMPANY-12588265

PATIENT
  Age: 71 Year
  Sex: Male

DRUGS (11)
  1. PARAPLATIN [Suspect]
     Indication: SMALL CELL LUNG CANCER STAGE UNSPECIFIED
     Route: 042
     Dates: start: 20040127, end: 20040127
  2. LASTET [Suspect]
     Indication: SMALL CELL LUNG CANCER STAGE UNSPECIFIED
     Route: 042
     Dates: start: 20040127, end: 20040129
  3. KYTRIL [Concomitant]
     Dates: start: 20040127, end: 20040129
  4. DECADRON [Concomitant]
     Dates: start: 20040127, end: 20040129
  5. MYSLEE [Concomitant]
     Dates: start: 20040121, end: 20040130
  6. LOXONIN [Concomitant]
     Dates: start: 20040121
  7. MUCOSTA [Concomitant]
     Dates: start: 20040121
  8. OXYCONTIN [Concomitant]
     Dates: start: 20040125
  9. MORPHINE [Concomitant]
     Dates: start: 20040125
  10. MAGNESIUM OXIDE [Concomitant]
     Dates: start: 20040128
  11. SENNOSIDE [Concomitant]
     Dates: start: 20040130

REACTIONS (2)
  - HYPERKALAEMIA [None]
  - RENAL IMPAIRMENT [None]
